FAERS Safety Report 23147218 (Version 2)
Quarter: 2023Q4

REPORT INFORMATION
  Report Type: Spontaneous
  Country: DE (occurrence: DE)
  Receive Date: 20231106
  Receipt Date: 20231117
  Transmission Date: 20240110
  Serious: Yes (Other)
  Sender: FDA-Public Use
  Company Number: None

PATIENT
  Sex: Female

DRUGS (8)
  1. AMLODIPINE [Suspect]
     Active Substance: AMLODIPINE BESYLATE
     Indication: Product used for unknown indication
     Dosage: 5 MG 1 MORGENS, 5 MG 1 ABENDS, UNREGELMABIG BEI BEDARF (5 MG 1 IN THE MORNING, 5 MG 1 IN THE EVENING
  2. PANTOPRAZOLE [Suspect]
     Active Substance: PANTOPRAZOLE
     Indication: Product used for unknown indication
     Dosage: 1 X MORGENS SEIT JAHREN (1 X IN THE MORNING FOR YEARS)
  3. OXYCODONE HYDROCHLORIDE [Suspect]
     Active Substance: OXYCODONE HYDROCHLORIDE
     Indication: Product used for unknown indication
     Dosage: SEIT JAHREN MORGENS 1 (FOR YEARS MORNING 1)
  4. BISOPROLOL [Suspect]
     Active Substance: BISOPROLOL\BISOPROLOL FUMARATE
     Indication: Product used for unknown indication
     Dosage: 1 MORGENS (1 MORNING)
  5. OXYCODONE HYDROCHLORIDE [Suspect]
     Active Substance: OXYCODONE HYDROCHLORIDE
     Indication: Product used for unknown indication
     Dosage: BEI BEDARF ABENDS SEIT JAHREN (IN THE EVENING IF REQUIRED FOR YEARS)
  6. LEVOTHYROXINE SODIUM [Suspect]
     Active Substance: LEVOTHYROXINE SODIUM
     Indication: Product used for unknown indication
     Dosage: 1 MORGENS SEIT JAHREN (1 MORNING FOR YEARS)
  7. HYDROCORTISONE [Suspect]
     Active Substance: HYDROCORTISONE
     Indication: Product used for unknown indication
     Dosage: 1 MORGENS SEIT JAHREN (1 IN MORNING FOR YEARS)
  8. ACETAMINOPHEN [Suspect]
     Active Substance: ACETAMINOPHEN
     Indication: Product used for unknown indication
     Dosage: 3-4X TAGLICH 1 SEIT JAHREN (3-4X DAILY 1 FOR YEARS)

REACTIONS (7)
  - Blood pressure increased [Unknown]
  - Feeling abnormal [Unknown]
  - Heart rate increased [Unknown]
  - Fear of death [Unknown]
  - Tinnitus [Unknown]
  - Oedema peripheral [Unknown]
  - Oedema peripheral [Unknown]
